FAERS Safety Report 15933172 (Version 1)
Quarter: 2019Q1

REPORT INFORMATION
  Report Type: Spontaneous
  Country: BR (occurrence: BR)
  Receive Date: 20190207
  Receipt Date: 20190207
  Transmission Date: 20190417
  Serious: Yes (Hospitalization, Other)
  Sender: FDA-Public Use
  Company Number: BR-GLAXOSMITHKLINE-BR2019GSK018960

PATIENT
  Sex: Female
  Weight: 23 kg

DRUGS (3)
  1. SERETIDE [Suspect]
     Active Substance: FLUTICASONE PROPIONATE\SALMETEROL XINAFOATE
     Indication: BRONCHIOLITIS
     Dosage: 1 PUFF(S), BID
     Route: 048
     Dates: start: 201808
  2. NASONEX [Concomitant]
     Active Substance: MOMETASONE FUROATE
     Indication: PRODUCT USED FOR UNKNOWN INDICATION
     Dosage: 1 PUFF(S), QD
     Dates: start: 201808
  3. PIEMONTE (MONTELUKAST SODIUM) [Concomitant]
     Indication: PRODUCT USED FOR UNKNOWN INDICATION
     Dosage: 1 DF, QD, TABLET, 4MG
     Route: 048
     Dates: start: 201602

REACTIONS (4)
  - Oropharyngeal pain [Recovered/Resolved]
  - Product use issue [Unknown]
  - Pharyngeal inflammation [Recovered/Resolved]
  - Product use in unapproved indication [Unknown]
